FAERS Safety Report 5381901-7 (Version None)
Quarter: 2007Q3

REPORT INFORMATION
  Report Type: 
  Country: None (occurrence: None)
  Receive Date: 20070705
  Receipt Date: 20070628
  Transmission Date: 20080115
  Serious: Yes (Death)
  Sender: FDA-Public Use
  Company Number: 6-29-2007-01

PATIENT
  Age: 85 Year
  Sex: Male
  Weight: 67 kg

DRUGS (1)
  1. SPS [Suspect]
     Indication: MEGACOLON
     Dosage: 15G, 1 DOSE, 049 OTHER GASTROENTERAL/NASOGAST

REACTIONS (2)
  - GASTROINTESTINAL NECROSIS [None]
  - LARGE INTESTINE PERFORATION [None]
